FAERS Safety Report 24337228 (Version 2)
Quarter: 2024Q4

REPORT INFORMATION
  Report Type: Spontaneous
  Country: US (occurrence: US)
  Receive Date: 20240919
  Receipt Date: 20241030
  Transmission Date: 20250115
  Serious: No
  Sender: BECTON DICKINSON
  Company Number: US-BECTON DICKINSON-US-BD-24-000539

PATIENT

DRUGS (1)
  1. CHLORAPREP WITH TINT [Suspect]
     Active Substance: CHLORHEXIDINE GLUCONATE\ISOPROPYL ALCOHOL
     Indication: Product used for unknown indication
     Dosage: N/A
     Route: 065

REACTIONS (2)
  - Product lot number issue [Unknown]
  - Product expiration date issue [Unknown]
